FAERS Safety Report 9753840 (Version 2)
Quarter: 2015Q3

REPORT INFORMATION
  Report Type: Spontaneous
  Country: US (occurrence: US)
  Receive Date: 20131213
  Receipt Date: 20150805
  Transmission Date: 20151125
  Serious: No
  Sender: FDA-Public Use
  Company Number: US-GILEAD-2010-0027657

PATIENT
  Age: 50 Year
  Sex: Female

DRUGS (11)
  1. MEDROXYPROGESTERONE [Concomitant]
     Active Substance: MEDROXYPROGESTERONE
  2. KLOR-CON [Concomitant]
     Active Substance: POTASSIUM CHLORIDE
  3. TYLENOL [Concomitant]
     Active Substance: ACETAMINOPHEN
  4. LEVOTHYROXINE. [Concomitant]
     Active Substance: LEVOTHYROXINE
  5. OXYGEN. [Concomitant]
     Active Substance: OXYGEN
  6. FUROSEMIDE. [Concomitant]
     Active Substance: FUROSEMIDE
  7. OYSTER SHELL CALCIUM WITH VITAMIN D [Suspect]
     Active Substance: CALCIUM\CHOLECALCIFEROL
  8. LETAIRIS [Suspect]
     Active Substance: AMBRISENTAN
     Indication: PULMONARY ARTERIAL HYPERTENSION
     Route: 048
     Dates: start: 20100219
  9. BISOPROLOL [Concomitant]
     Active Substance: BISOPROLOL
  10. MULTIVITAMIN [Concomitant]
     Active Substance: VITAMINS
  11. HORIZON NASAL CPAP [Concomitant]

REACTIONS (1)
  - Nasal congestion [Unknown]
